FAERS Safety Report 18406095 (Version 2)
Quarter: 2020Q4

REPORT INFORMATION
  Report Type: Spontaneous
  Country: US (occurrence: US)
  Receive Date: 20201020
  Receipt Date: 20201027
  Transmission Date: 20210114
  Serious: Yes (Other)
  Sender: FDA-Public Use
  Company Number: US-PFIZER INC-2020400970

PATIENT
  Sex: Female

DRUGS (4)
  1. TAMOXIFEN [Concomitant]
     Active Substance: TAMOXIFEN
     Indication: INVASIVE DUCTAL BREAST CARCINOMA
     Dosage: UNK
  2. DEXAMETHASONE. [Suspect]
     Active Substance: DEXAMETHASONE
     Indication: PLASMA CELL MYELOMA
     Dosage: 40 MG ORALLY ADMINISTERED ON DAYS 2, 5, 9, AND 12 OF A 21-DAY CYCLE (DV). 5.5 CYCLES OF TREATMENT
     Route: 048
     Dates: start: 201010, end: 201103
  3. ZOLEDRONIC ACID [Suspect]
     Active Substance: ZOLEDRONIC ACID
     Indication: PLASMA CELL MYELOMA
     Dosage: UNK UNK, MONTHLY. 5.5 CYCLES OF TREATMENT
     Dates: start: 201010, end: 201103
  4. BORTEZOMIB. [Suspect]
     Active Substance: BORTEZOMIB
     Indication: PLASMA CELL MYELOMA
     Dosage: 2.6 MG IV ADMINISTERED ON DAYS 1, 4, 8 AND 11. 5.5 CYCLES OF TREATMENT
     Route: 042
     Dates: start: 201010, end: 201103

REACTIONS (4)
  - Neuropathy peripheral [Unknown]
  - Diarrhoea [Unknown]
  - Lethargy [Unknown]
  - Constipation [Unknown]
